FAERS Safety Report 25862662 (Version 7)
Quarter: 2025Q4

REPORT INFORMATION
  Report Type: Report from Study
  Country: CA (occurrence: CA)
  Receive Date: 20250930
  Receipt Date: 20251215
  Transmission Date: 20260117
  Serious: Yes (Hospitalization, Other)
  Sender: JOHNSON AND JOHNSON
  Company Number: CA-JNJFOC-20230414287

PATIENT
  Age: 44 Year
  Sex: Male
  Weight: 111 kg

DRUGS (26)
  1. REMICADE [Suspect]
     Active Substance: INFLIXIMAB
     Indication: Crohn^s disease
     Dosage: START DATE: 04/APR/2008 AND EXPIRY: 30-SEP-2025, V6: EXPIRY DATE: MAR-2026
     Route: 041
     Dates: start: 20070803
  2. REMICADE [Suspect]
     Active Substance: INFLIXIMAB
     Route: 041
  3. REMICADE [Suspect]
     Active Substance: INFLIXIMAB
     Route: 041
  4. REMICADE [Suspect]
     Active Substance: INFLIXIMAB
     Route: 041
  5. REMICADE [Suspect]
     Active Substance: INFLIXIMAB
     Route: 041
  6. REMICADE [Suspect]
     Active Substance: INFLIXIMAB
     Route: 041
  7. REMICADE [Suspect]
     Active Substance: INFLIXIMAB
     Dosage: EXPIRY DATE: MAR-2027
     Route: 041
  8. REMICADE [Suspect]
     Active Substance: INFLIXIMAB
     Route: 041
  9. REMICADE [Suspect]
     Active Substance: INFLIXIMAB
     Route: 041
  10. REMICADE [Suspect]
     Active Substance: INFLIXIMAB
     Route: 041
  11. REMICADE [Suspect]
     Active Substance: INFLIXIMAB
     Route: 041
  12. REMICADE [Suspect]
     Active Substance: INFLIXIMAB
     Route: 041
  13. REMICADE [Suspect]
     Active Substance: INFLIXIMAB
     Route: 041
  14. REMICADE [Suspect]
     Active Substance: INFLIXIMAB
     Dosage: 10/27
     Route: 041
  15. METOPROLOL [Suspect]
     Active Substance: METOPROLOL
     Indication: Atrial fibrillation
     Dosage: DOSE WAS INCREASED TO 75MG BID
     Dates: start: 20230915
  16. METOPROLOL [Suspect]
     Active Substance: METOPROLOL
  17. METOPROLOL [Suspect]
     Active Substance: METOPROLOL
  18. PANTOPRAZOLE MAGNESIUM [Concomitant]
     Active Substance: PANTOPRAZOLE MAGNESIUM
     Indication: Product used for unknown indication
  19. AMLODIPINE [Concomitant]
     Active Substance: AMLODIPINE BESYLATE
     Indication: Product used for unknown indication
  20. AMLODIPINE [Concomitant]
     Active Substance: AMLODIPINE BESYLATE
  21. APIXABAN [Concomitant]
     Active Substance: APIXABAN
     Indication: Product used for unknown indication
     Dates: start: 20230915
  22. PERINDOPRIL ERBUMINE [Concomitant]
     Active Substance: PERINDOPRIL ERBUMINE
     Indication: Product used for unknown indication
  23. IRON [Concomitant]
     Active Substance: IRON
     Indication: Product used for unknown indication
  24. IRON [Concomitant]
     Active Substance: IRON
  25. DAPAGLIFLOZIN [Concomitant]
     Active Substance: DAPAGLIFLOZIN
     Indication: Product used for unknown indication
  26. SPIRONOLACTONE [Concomitant]
     Active Substance: SPIRONOLACTONE
     Indication: Product used for unknown indication

REACTIONS (29)
  - Anaemia [Not Recovered/Not Resolved]
  - Cellulitis [Recovered/Resolved]
  - Choking [Not Recovered/Not Resolved]
  - Oesophageal candidiasis [Not Recovered/Not Resolved]
  - Atrial fibrillation [Not Recovered/Not Resolved]
  - Cardiac pacemaker insertion [Recovered/Resolved]
  - Pleural effusion [Not Recovered/Not Resolved]
  - Suture related complication [Not Recovered/Not Resolved]
  - Stoma site infection [Recovering/Resolving]
  - Incision site erythema [Recovering/Resolving]
  - Hepatic enzyme abnormal [Recovered/Resolved]
  - Eye irritation [Recovering/Resolving]
  - Weight increased [Not Recovered/Not Resolved]
  - Visual impairment [Recovering/Resolving]
  - Postoperative wound infection [Recovered/Resolved]
  - Abdominal pain upper [Not Recovered/Not Resolved]
  - Blood iron decreased [Not Recovered/Not Resolved]
  - Erythema [Not Recovered/Not Resolved]
  - Granuloma [Not Recovered/Not Resolved]
  - Pruritus [Not Recovered/Not Resolved]
  - Acrochordon [Not Recovered/Not Resolved]
  - Herpes zoster [Unknown]
  - Infusion site reaction [Unknown]
  - Fluid retention [Not Recovered/Not Resolved]
  - Papule [Not Recovered/Not Resolved]
  - Stoma site haemorrhage [Not Recovered/Not Resolved]
  - Skin exfoliation [Not Recovered/Not Resolved]
  - Skin irritation [Not Recovered/Not Resolved]
  - Stoma site inflammation [Not Recovered/Not Resolved]

NARRATIVE: CASE EVENT DATE: 20230404
